FAERS Safety Report 14204177 (Version 2)
Quarter: 2017Q4

REPORT INFORMATION
  Report Type: Report from Study
  Country: CA (occurrence: CA)
  Receive Date: 20171120
  Receipt Date: 20171129
  Transmission Date: 20180321
  Serious: Yes (Death, Hospitalization)
  Sender: FDA-Public Use
  Company Number: CA-FERRINGPH-2017FE04448

PATIENT
  Age: 70 Year
  Sex: Male
  Weight: 82 kg

DRUGS (1)
  1. DEGARELIX [Suspect]
     Active Substance: DEGARELIX
     Indication: PROSTATE CANCER
     Dosage: 80 MG, MONTHLY
     Route: 058
     Dates: start: 20170607, end: 20171006

REACTIONS (5)
  - Dyspnoea [Recovered/Resolved]
  - Pain [Unknown]
  - Death [Fatal]
  - Dysuria [Recovered/Resolved]
  - Peripheral swelling [Recovered/Resolved]

NARRATIVE: CASE EVENT DATE: 20170804
